FAERS Safety Report 10314318 (Version 2)
Quarter: 2014Q3

REPORT INFORMATION
  Report Type: Spontaneous
  Country: US (occurrence: US)
  Receive Date: 20140718
  Receipt Date: 20140718
  Transmission Date: 20150326
  Serious: Yes (Death, Hospitalization)
  Sender: FDA-Public Use
  Company Number: US-GLAXOSMITHKLINE-B0717941A

PATIENT
  Sex: Female

DRUGS (1)
  1. AVANDIA [Suspect]
     Active Substance: ROSIGLITAZONE MALEATE
     Indication: DIABETES MELLITUS
     Dosage: 4MG PER DAY
     Route: 048
     Dates: start: 2007, end: 20080509

REACTIONS (6)
  - Cerebral amyloid angiopathy [Unknown]
  - Cerebrovascular accident [Unknown]
  - Intracranial haematoma [Unknown]
  - Haemorrhagic infarction [Unknown]
  - Death [Fatal]
  - Haemorrhagic stroke [Unknown]
